FAERS Safety Report 17545499 (Version 2)
Quarter: 2020Q1

REPORT INFORMATION
  Report Type: Spontaneous
  Country: PT (occurrence: PT)
  Receive Date: 20200316
  Receipt Date: 20200323
  Transmission Date: 20200409
  Serious: Yes (Hospitalization, Other)
  Sender: FDA-Public Use
  Company Number: PT-MYLANLABS-2020M1026464

PATIENT
  Age: 72 Year
  Sex: Female

DRUGS (5)
  1. BOSENTAN. [Suspect]
     Active Substance: BOSENTAN
     Indication: PULMONARY ARTERIAL HYPERTENSION
     Dosage: 62.5 MG TWICE DAILY
     Route: 065
  2. BOSENTAN. [Suspect]
     Active Substance: BOSENTAN
     Dosage: 62.5 MILLIGRAM, QD
     Route: 065
  3. SILDENAFIL. [Suspect]
     Active Substance: SILDENAFIL
     Indication: PULMONARY ARTERIAL HYPERTENSION
     Dosage: 50 MILLIGRAM, QD
     Route: 065
  4. SILDENAFIL. [Suspect]
     Active Substance: SILDENAFIL
     Dosage: 25 MILLIGRAM, QD
     Route: 065
  5. SILDENAFIL. [Suspect]
     Active Substance: SILDENAFIL
     Dosage: 25 MILLIGRAM, QD
     Route: 065

REACTIONS (1)
  - Acute pulmonary oedema [Recovering/Resolving]
